FAERS Safety Report 15027327 (Version 1)
Quarter: 2018Q2

REPORT INFORMATION
  Report Type: Report from Study
  Country: JP (occurrence: JP)
  Receive Date: 20180619
  Receipt Date: 20180619
  Transmission Date: 20180711
  Serious: Yes (Life-Threatening)
  Sender: FDA-Public Use
  Company Number: JP-B.I. PHARMACEUTICALS,INC./RIDGEFIELD-2018-NB-002358

PATIENT
  Age: 70 Year
  Sex: Male
  Weight: 61 kg

DRUGS (5)
  1. PRAZAXA [Suspect]
     Active Substance: DABIGATRAN ETEXILATE MESYLATE
     Indication: CEREBROVASCULAR ACCIDENT PROPHYLAXIS
     Route: 048
     Dates: start: 20180109, end: 20180113
  2. PRAZAXA [Suspect]
     Active Substance: DABIGATRAN ETEXILATE MESYLATE
     Indication: ATRIAL FIBRILLATION
  3. PRAZAXA [Suspect]
     Active Substance: DABIGATRAN ETEXILATE MESYLATE
     Indication: THROMBOSIS PROPHYLAXIS
  4. TAKECAB [Suspect]
     Active Substance: VONOPRAZAN FUMURATE
     Indication: PRODUCT USED FOR UNKNOWN INDICATION
     Route: 065
  5. MAINTATE [Concomitant]
     Active Substance: BISOPROLOL FUMARATE
     Indication: ATRIAL FIBRILLATION
     Route: 048

REACTIONS (3)
  - Acute hepatic failure [Unknown]
  - Disseminated intravascular coagulation [Unknown]
  - Acute kidney injury [Unknown]

NARRATIVE: CASE EVENT DATE: 20180113
